FAERS Safety Report 13666321 (Version 1)
Quarter: 2017Q2

REPORT INFORMATION
  Report Type: Spontaneous
  Country: US (occurrence: US)
  Receive Date: 20170619
  Receipt Date: 20170619
  Transmission Date: 20170830
  Serious: No
  Sender: FDA-Public Use
  Company Number: US-ROCHE-1536244

PATIENT
  Age: 55 Year
  Sex: Female

DRUGS (2)
  1. XELODA [Suspect]
     Active Substance: CAPECITABINE
     Dosage: 7 DAYS ON AND 7 DAYS OFF (3 TABLETS)
     Route: 048
  2. XELODA [Suspect]
     Active Substance: CAPECITABINE
     Indication: LIP AND/OR ORAL CAVITY CANCER
     Dosage: 7 DAYS ON AND 7 DAYS OFF (2 TABLETS)
     Route: 048

REACTIONS (2)
  - Depression [Unknown]
  - Palmar-plantar erythrodysaesthesia syndrome [Unknown]
